FAERS Safety Report 13467311 (Version 5)
Quarter: 2019Q4

REPORT INFORMATION
  Report Type: Spontaneous
  Country: US (occurrence: US)
  Receive Date: 20170421
  Receipt Date: 20191018
  Transmission Date: 20200122
  Serious: Yes (Other)
  Sender: FDA-Public Use
  Company Number: PHEH2017US011731

PATIENT
  Sex: Female
  Weight: 72.56 kg

DRUGS (1)
  1. ZOFRAN [Suspect]
     Active Substance: ONDANSETRON HYDROCHLORIDE
     Indication: MORNING SICKNESS
     Dosage: 4 MG, TID
     Route: 048
     Dates: start: 20050428, end: 20051206

REACTIONS (12)
  - Cardiac murmur [Unknown]
  - Dizziness [Unknown]
  - Abdominal discomfort [Unknown]
  - Product use in unapproved indication [Unknown]
  - Subvalvular aortic stenosis [Unknown]
  - Circulatory collapse [Unknown]
  - Maternal exposure during pregnancy [Unknown]
  - Aortic valve incompetence [Unknown]
  - Emotional distress [Unknown]
  - Depression [Unknown]
  - Injury [Unknown]
  - Anxiety [Unknown]
